FAERS Safety Report 12850368 (Version 1)
Quarter: 2016Q4

REPORT INFORMATION
  Report Type: Spontaneous
  Country: US (occurrence: US)
  Receive Date: 20161014
  Receipt Date: 20161014
  Transmission Date: 20170207
  Serious: Yes (Hospitalization, Other)
  Sender: FDA-Public Use
  Company Number: US-TEVA-701952USA

PATIENT
  Sex: Male
  Weight: 81.27 kg

DRUGS (9)
  1. METOPROLOL SUCCINATE. [Suspect]
     Active Substance: METOPROLOL SUCCINATE
     Route: 065
  2. ASPIRIN. [Concomitant]
     Active Substance: ASPIRIN
  3. AMLODIPINE [Suspect]
     Active Substance: AMLODIPINE BESYLATE
     Route: 065
  4. POTASSIUM CHLORIDE. [Suspect]
     Active Substance: POTASSIUM CHLORIDE
     Route: 065
  5. BUMETANIDE. [Suspect]
     Active Substance: BUMETANIDE
     Route: 065
  6. POTASSIUM CHLORIDE. [Suspect]
     Active Substance: POTASSIUM CHLORIDE
     Route: 065
  7. METOLAZONE. [Suspect]
     Active Substance: METOLAZONE
     Route: 065
  8. BUMETANIDE. [Suspect]
     Active Substance: BUMETANIDE
     Route: 065
  9. ATORVASTATIN [Concomitant]
     Active Substance: ATORVASTATIN

REACTIONS (3)
  - Cardiac failure [Unknown]
  - Pulmonary hypertension [Unknown]
  - Amyloidosis [Not Recovered/Not Resolved]

NARRATIVE: CASE EVENT DATE: 2016
